FAERS Safety Report 17588408 (Version 2)
Quarter: 2021Q2

REPORT INFORMATION
  Report Type: Report from Study
  Country: US (occurrence: US)
  Receive Date: 20200326
  Receipt Date: 20210517
  Transmission Date: 20210716
  Serious: Yes (Hospitalization)
  Sender: FDA-Public Use
  Company Number: US-INCYTE CORPORATION-2020IN002789

PATIENT

DRUGS (2)
  1. JAKAFI [Suspect]
     Active Substance: RUXOLITINIB
     Indication: POLYCYTHAEMIA VERA
     Dosage: 5 MILLIGRAM, BID
     Route: 048
     Dates: start: 20160822
  2. JAKAFI [Suspect]
     Active Substance: RUXOLITINIB
     Dosage: 5 MG TABS, 2 TABS MON?FRI AND 1 TAB SAT AND SUN
     Route: 048
     Dates: start: 20160822

REACTIONS (6)
  - Renal function test abnormal [Unknown]
  - Fall [Unknown]
  - Asthenia [Unknown]
  - Urinary tract infection [Recovering/Resolving]
  - Compression fracture [Recovering/Resolving]
  - Dehydration [Recovering/Resolving]
